FAERS Safety Report 9972936 (Version 2)
Quarter: 2014Q1

REPORT INFORMATION
  Report Type: Spontaneous
  Country: FR (occurrence: FR)
  Receive Date: 20140306
  Receipt Date: 20140306
  Transmission Date: 20141002
  Serious: Yes (Hospitalization)
  Sender: FDA-Public Use
  Company Number: FR-ALLERGAN-1403294US

PATIENT
  Age: 83 Year
  Sex: Female
  Weight: 119 kg

DRUGS (4)
  1. GANFORT [Suspect]
     Indication: OCULAR HYPERTENSION
     Dosage: 1 DROP DAILY
     Dates: start: 20140205, end: 20140220
  2. COMBIGAN [Suspect]
     Indication: OCULAR HYPERTENSION
     Dosage: 1 DROP, DAILY
     Dates: start: 20140205, end: 20140220
  3. DIAMOX [Suspect]
     Indication: OCULAR HYPERTENSION
     Dosage: 3 TABLETS, DAILY
     Route: 048
     Dates: start: 20140205, end: 20140220
  4. DIFFU K [Suspect]
     Indication: PRODUCT USED FOR UNKNOWN INDICATION
     Dosage: 2 DF, UNK
     Dates: start: 20140205, end: 20140220

REACTIONS (8)
  - Eyelid ptosis [Recovering/Resolving]
  - Cognitive disorder [Recovering/Resolving]
  - Hypophagia [Recovering/Resolving]
  - Somnolence [Recovering/Resolving]
  - Abnormal behaviour [Recovered/Resolved]
  - Blood urea increased [Unknown]
  - Blood creatinine increased [Unknown]
  - Haemoglobin decreased [Unknown]
